FAERS Safety Report 7605251-0 (Version None)
Quarter: 2011Q3

REPORT INFORMATION
  Report Type: 
  Country: None (occurrence: None)
  Receive Date: 20110705
  Receipt Date: 20110621
  Transmission Date: 20111222
  Serious: Yes (Death)
  Sender: FDA-Public Use
  Company Number: FK201101251

PATIENT
  Age: 62 Year
  Sex: Male

DRUGS (2)
  1. DOCETAXEL [Suspect]
     Dosage: 80 MG/M2, IN 30 0ML SALINE OVER 2 HOURS;
  2. CISPLATIN [Suspect]
     Dosage: 75 MG/M2, OVER 2 HOURS, INTRAVENOUS (NOT OTHERWISE SPECIFIED)
     Route: 042

REACTIONS (2)
  - NEUTROPENIA [None]
  - PNEUMONIA BACTERIAL [None]
